FAERS Safety Report 8214008-1 (Version None)
Quarter: 2012Q1

REPORT INFORMATION
  Report Type: 
  Country: None (occurrence: None)
  Receive Date: 20120316
  Receipt Date: 20120313
  Transmission Date: 20120608
  Serious: No
  Sender: FDA-Public Use
  Company Number: US-PFIZER INC-2012023606

PATIENT
  Sex: Female
  Weight: 83.9 kg

DRUGS (12)
  1. CHANTIX [Suspect]
     Dosage: UNK
     Dates: start: 20111101, end: 20111201
  2. METFORMIN [Concomitant]
     Indication: DIABETES MELLITUS
     Dosage: 1000 MG, 2X/DAY
  3. CHANTIX [Suspect]
     Dosage: 0.5 MG, DAILY
     Dates: start: 20111101, end: 20111101
  4. IBUPROFEN [Concomitant]
     Indication: ARTHRITIS
     Dosage: 500 MG, 3X/DAY
  5. GEMFIBROZIL [Concomitant]
     Dosage: UNK
  6. CYCLOBENZAPRINE [Concomitant]
     Dosage: UNK
  7. PRAVACHOL [Concomitant]
     Dosage: UNK
  8. CHANTIX [Suspect]
     Indication: SMOKING CESSATION THERAPY
     Dosage: 0.5 MG, DAILY
  9. GLIPIZIDE [Concomitant]
     Indication: DIABETES MELLITUS
     Dosage: 10 MG, 2X/DAY
  10. SYNTHROID [Concomitant]
     Dosage: UNK
  11. CHANTIX [Suspect]
     Dosage: 0.5/1MG AS DIRECTED
     Dates: start: 20110916, end: 20111102
  12. ASPIRIN [Concomitant]
     Indication: CARDIAC DISORDER
     Dosage: 81 MG, DAILY

REACTIONS (2)
  - VOMITING [None]
  - DRUG INEFFECTIVE [None]
